FAERS Safety Report 5144165-5 (Version None)
Quarter: 2006Q4

REPORT INFORMATION
  Report Type: 
  Country: None (occurrence: None)
  Receive Date: 20061106
  Receipt Date: 20061031
  Transmission Date: 20070319
  Serious: Yes (Other)
  Sender: FDA-Public Use
  Company Number: US-JNJFOC-20061100093

PATIENT
  Age: 49 Year
  Sex: Female
  Weight: 67.13 kg

DRUGS (5)
  1. REMICADE [Suspect]
     Indication: CROHN'S DISEASE
     Dosage: 6 INFUSIONIS
     Route: 042
  2. COLAZAL [Concomitant]
  3. FLUOXETINE [Concomitant]
  4. PRILOSEC [Concomitant]
  5. CANASA [Concomitant]

REACTIONS (1)
  - RENAL NEOPLASM [None]
